FAERS Safety Report 7959108-6 (Version None)
Quarter: 2011Q4

REPORT INFORMATION
  Report Type: 
  Country: None (occurrence: None)
  Receive Date: 20111206
  Receipt Date: 20111206
  Transmission Date: 20120403
  Serious: Yes (Other)
  Sender: FDA-Public Use
  Company Number: None

PATIENT

DRUGS (5)
  1. APTIVUS [Suspect]
  2. VIREAD [Suspect]
  3. EPIVIR [Suspect]
  4. ISENTRESS [Suspect]
  5. NORVIR [Suspect]

REACTIONS (1)
  - RETINAL DEGENERATION [None]
